FAERS Safety Report 6159071-7 (Version None)
Quarter: 2009Q2

REPORT INFORMATION
  Report Type: 
  Country: None (occurrence: None)
  Receive Date: 20090417
  Receipt Date: 20090409
  Transmission Date: 20091009
  Serious: Yes (Hospitalization)
  Sender: FDA-Public Use
  Company Number: US-ELI_LILLY_AND_COMPANY-US200904002089

PATIENT
  Sex: Male

DRUGS (3)
  1. HUMALOG [Suspect]
     Route: 058
     Dates: start: 19990101
  2. AMOXICILLIN [Concomitant]
     Indication: INFECTION
     Dosage: 800 MG, UNK
     Dates: start: 20090212
  3. SYNTHROID [Concomitant]

REACTIONS (14)
  - ABDOMINAL DISCOMFORT [None]
  - BLOOD GLUCOSE DECREASED [None]
  - BLOOD GLUCOSE INCREASED [None]
  - DEHYDRATION [None]
  - DIABETIC KETOACIDOSIS [None]
  - DRUG INEFFECTIVE [None]
  - HEADACHE [None]
  - INFECTION [None]
  - MALAISE [None]
  - MEDICATION ERROR [None]
  - OROPHARYNGEAL PAIN [None]
  - PYREXIA [None]
  - TREATMENT NONCOMPLIANCE [None]
  - VOMITING [None]
